FAERS Safety Report 13690525 (Version 1)
Quarter: 2017Q2

REPORT INFORMATION
  Report Type: Spontaneous
  Country: KZ (occurrence: KZ)
  Receive Date: 20170626
  Receipt Date: 20170626
  Transmission Date: 20170830
  Serious: Yes (Other)
  Sender: FDA-Public Use
  Company Number: KZ-JNJFOC-20170615370

PATIENT
  Sex: Female

DRUGS (2)
  1. DOXORUBICIN HYDROCHLORIDE. [Suspect]
     Active Substance: DOXORUBICIN HYDROCHLORIDE
     Indication: BREAST CANCER
     Route: 065
  2. CYCLOPHOSPHAMIDE. [Suspect]
     Active Substance: CYCLOPHOSPHAMIDE
     Indication: BREAST CANCER
     Dosage: ON DAY 1 EVERY 21 DAYS FOLLOWED BY RADICAL MASTECTOMY
     Route: 065

REACTIONS (8)
  - Vomiting [Unknown]
  - Neutropenia [Unknown]
  - Nephropathy toxic [Unknown]
  - Mucosal inflammation [Unknown]
  - Thrombocytopenia [Unknown]
  - Hepatotoxicity [Unknown]
  - Nausea [Unknown]
  - Anaemia [Unknown]
